FAERS Safety Report 16491921 (Version 1)
Quarter: 2019Q2

REPORT INFORMATION
  Report Type: Spontaneous
  Country: DE (occurrence: DE)
  Receive Date: 20190628
  Receipt Date: 20190628
  Transmission Date: 20190711
  Serious: Yes (Death, Other)
  Sender: FDA-Public Use
  Company Number: DE-AUROBINDO-AUR-APL-2019-036701

PATIENT

DRUGS (9)
  1. DOCETAXEL. [Suspect]
     Active Substance: DOCETAXEL
     Dosage: UNK
     Route: 065
     Dates: start: 20190220
  2. FLUOROURACIL. [Suspect]
     Active Substance: FLUOROURACIL
     Indication: ADENOCARCINOMA
     Dosage: UNK
     Route: 065
     Dates: start: 20190206
  3. OXALIPLATIN. [Suspect]
     Active Substance: OXALIPLATIN
     Indication: ADENOCARCINOMA
     Dosage: UNK
     Route: 065
     Dates: start: 20190206
  4. OXALIPLATIN. [Suspect]
     Active Substance: OXALIPLATIN
     Dosage: UNK
     Route: 065
     Dates: start: 20190220
  5. DOCETAXEL. [Suspect]
     Active Substance: DOCETAXEL
     Indication: ADENOCARCINOMA
     Dosage: UNK
     Route: 065
     Dates: start: 20190206
  6. FLUOROURACIL. [Suspect]
     Active Substance: FLUOROURACIL
     Dosage: UNK
     Route: 065
     Dates: start: 20190220
  7. FOLINIC ACID [Suspect]
     Active Substance: LEUCOVORIN
     Indication: ADENOCARCINOMA
     Dosage: UNK
     Route: 065
     Dates: start: 20190206
  8. FOLINIC ACID [Suspect]
     Active Substance: LEUCOVORIN
     Dosage: UNK
     Route: 065
     Dates: start: 20190220
  9. ZOSTEX [Suspect]
     Active Substance: BRIVUDINE
     Indication: HERPES ZOSTER
     Dosage: 125 MILLIGRAM, ONCE A DAY
     Route: 048
     Dates: start: 20190214, end: 20190220

REACTIONS (16)
  - Leukoencephalopathy [Fatal]
  - Contraindicated product prescribed [Fatal]
  - Neutropenic colitis [Fatal]
  - Cerebral infarction [Fatal]
  - Hyponatraemia [Fatal]
  - Toxic encephalopathy [Fatal]
  - Dysarthria [Fatal]
  - Mucosal inflammation [Fatal]
  - Bone marrow toxicity [Fatal]
  - Brain oedema [Fatal]
  - Status epilepticus [Fatal]
  - Pancytopenia [Fatal]
  - Hypocalcaemia [Fatal]
  - Dysphagia [Fatal]
  - Febrile neutropenia [Fatal]
  - Hypokalaemia [Fatal]

NARRATIVE: CASE EVENT DATE: 201902
